FAERS Safety Report 9448504 (Version 1)
Quarter: 2013Q3

REPORT INFORMATION
  Report Type: Spontaneous
  Country: US (occurrence: US)
  Receive Date: 20130808
  Receipt Date: 20130808
  Transmission Date: 20140515
  Serious: Yes (Hospitalization, Other)
  Sender: FDA-Public Use
  Company Number: US-JNJFOC-20130718951

PATIENT
  Sex: 0

DRUGS (2)
  1. REMICADE [Suspect]
     Indication: CROHN^S DISEASE
     Route: 042
  2. OTHER BIOLOGICS [Suspect]
     Indication: CROHN^S DISEASE
     Route: 065

REACTIONS (5)
  - Postoperative ileus [Unknown]
  - Post procedural infection [Unknown]
  - Post procedural infection [Unknown]
  - Lower respiratory tract infection [Unknown]
  - Post procedural infection [Unknown]
